FAERS Safety Report 5043576-6 (Version None)
Quarter: 2006Q3

REPORT INFORMATION
  Report Type: 
  Country: None (occurrence: None)
  Receive Date: 20060706
  Receipt Date: 20060626
  Transmission Date: 20061208
  Serious: Yes (Other)
  Sender: FDA-Public Use
  Company Number: US-JNJFOC-20060605602

PATIENT
  Sex: Female

DRUGS (8)
  1. REMICADE [Suspect]
     Indication: RHEUMATOID ARTHRITIS
     Route: 042
  2. REMICADE [Suspect]
     Indication: CROHN'S DISEASE
     Route: 042
  3. METHOTREXATE [Concomitant]
     Indication: RHEUMATOID ARTHRITIS
  4. ZOLOFT [Concomitant]
  5. ALPRAZOLAM [Concomitant]
  6. FOLIC ACID [Concomitant]
  7. TRAZODONE HCL [Concomitant]
     Indication: SLEEP DISORDER
  8. PREDNISONE [Concomitant]

REACTIONS (2)
  - VAGINAL DISCHARGE [None]
  - VESICAL FISTULA [None]
